FAERS Safety Report 18211945 (Version 2)
Quarter: 2021Q2

REPORT INFORMATION
  Report Type: Spontaneous
  Country: CA (occurrence: CA)
  Receive Date: 20200831
  Receipt Date: 20210531
  Transmission Date: 20210717
  Serious: Yes (Other)
  Sender: FDA-Public Use
  Company Number: CA-GLAXOSMITHKLINE-CA2020AMR173238

PATIENT
  Age: 64 Year
  Sex: Female

DRUGS (5)
  1. FOSCAVIR [Suspect]
     Active Substance: FOSCARNET SODIUM
     Indication: ANTIVIRAL TREATMENT
     Dosage: 24 MG/ML
     Route: 042
  2. VALACYCLOVIR [Suspect]
     Active Substance: VALACYCLOVIR HYDROCHLORIDE
     Indication: ANTIVIRAL PROPHYLAXIS
     Dosage: UNK
  3. ACYCLOVIR SODIUM. [Suspect]
     Active Substance: ACYCLOVIR SODIUM
     Indication: ANTIVIRAL PROPHYLAXIS
     Dosage: UNK
     Route: 042
  4. VALGANCICLOVIR. [Suspect]
     Active Substance: VALGANCICLOVIR
     Indication: ANTIVIRAL TREATMENT
     Dosage: 900 MG/KG, BID
     Route: 048
  5. GANCICLOVIR. [Suspect]
     Active Substance: GANCICLOVIR
     Indication: ANTIVIRAL TREATMENT
     Dosage: UNK
     Route: 042

REACTIONS (4)
  - Cytomegalovirus infection [Not Recovered/Not Resolved]
  - Encephalitis cytomegalovirus [Not Recovered/Not Resolved]
  - Cytomegalovirus viraemia [Not Recovered/Not Resolved]
  - Pathogen resistance [Not Recovered/Not Resolved]
